FAERS Safety Report 8926981 (Version 1)
Quarter: 2012Q4

REPORT INFORMATION
  Report Type: 
  Country: ES (occurrence: ES)
  Receive Date: 20121127
  Receipt Date: 20121127
  Transmission Date: 20130627
  Serious: Yes (Other)
  Sender: FDA-Public Use
  Company Number: ES-JNJFOC-20121107727

PATIENT
  Age: 90 Year
  Sex: Female

DRUGS (7)
  1. RISPERDAL [Suspect]
     Indication: PRODUCT USED FOR UNKNOWN INDICATION
     Route: 048
     Dates: start: 20120816, end: 20120824
  2. AMOXICILLIN CLAVULANIC ACID [Suspect]
     Indication: GASTROINTESTINAL ULCER
     Route: 042
     Dates: start: 20120820, end: 20120824
  3. PARACETAMOL [Concomitant]
     Indication: PYREXIA
     Route: 042
     Dates: start: 20120816
  4. OMEPRAZOLE [Concomitant]
     Indication: PROPHYLAXIS AGAINST GASTROINTESTINAL ULCER
     Route: 048
     Dates: start: 20120816
  5. CEFTRIAXONA [Concomitant]
     Route: 065
     Dates: start: 20120816, end: 20120820
  6. UNKNOWN MEDICATION [Concomitant]
     Route: 042
     Dates: start: 20120816, end: 20120818
  7. LEVOFLOXACIN [Concomitant]
     Route: 042
     Dates: start: 20120816, end: 20120818

REACTIONS (1)
  - Hepatitis cholestatic [Recovering/Resolving]
